FAERS Safety Report 4285567-9 (Version None)
Quarter: 2004Q1

REPORT INFORMATION
  Report Type: 
  Country: None (occurrence: None)
  Receive Date: 20040204
  Receipt Date: 20040120
  Transmission Date: 20041129
  Serious: Yes (Death, Hospitalization)
  Sender: FDA-Public Use
  Company Number: 2004-00017

PATIENT
  Age: 51 Year
  Sex: Female

DRUGS (20)
  1. FERRLECIT [Suspect]
     Dosage: 126 MG, SINGLE
     Dates: start: 20030419, end: 20030419
  2. FERRLECIT [Suspect]
     Dosage: 126 MG, SINGLE
     Dates: start: 20030422, end: 20030422
  3. FERRLECIT [Suspect]
     Dosage: 126 MG, SINGLE
     Dates: start: 20030424, end: 20030424
  4. FERRLECIT [Suspect]
     Dosage: 126 MG, SINGLE
     Dates: start: 20030426, end: 20030426
  5. FERRLECIT [Suspect]
     Dosage: 126 MG, SINGLE
     Dates: start: 20030429, end: 20030429
  6. FERRLECIT [Suspect]
     Dosage: 126 MG, SINGLE
     Dates: start: 20030501, end: 20030501
  7. FERRLECIT [Suspect]
     Dosage: 126 MG, SINGLE
     Dates: start: 20030503, end: 20030503
  8. FERRLECIT [Suspect]
     Dosage: 126 MG, SINGLE
     Dates: start: 20030508, end: 20030508
  9. FERRLECIT [Suspect]
     Dosage: 126 MG, SINGLE
     Dates: start: 20030515, end: 20030515
  10. FERRLECIT [Suspect]
     Dosage: 126 MG, SINGLE
     Dates: start: 20030522, end: 20030522
  11. FERRLECIT [Suspect]
     Dosage: 126 MG, SINGLE
     Dates: start: 20030529, end: 20030529
  12. FERRLECIT [Suspect]
     Dosage: 126 MG, SINGLE
     Dates: start: 20030531, end: 20030531
  13. FERRLECIT [Suspect]
     Dosage: 126 MG, SINGLE
     Dates: start: 20030603, end: 20030603
  14. FERRLECIT [Suspect]
     Dosage: 126 MG, SINGLE
     Dates: start: 20030605, end: 20030605
  15. FERRLECIT [Suspect]
     Dosage: 126 MG, SINGLE
     Dates: start: 20030607, end: 20030607
  16. FERRLECIT [Suspect]
     Dosage: 126 MG, SINGLE
     Dates: start: 20030610, end: 20030610
  17. FERRLECIT [Suspect]
     Dosage: 126 MG, SINGLE
     Dates: start: 20030612, end: 20030612
  18. FERRLECIT [Suspect]
     Dosage: 126 MG, SINGLE
     Dates: start: 20030614, end: 20030614
  19. FERRLECIT [Suspect]
     Dosage: 126 MG, SINGLE
     Dates: start: 20030626, end: 20030626
  20. EPOGEN [Concomitant]

REACTIONS (1)
  - SEPSIS [None]
